FAERS Safety Report 12417877 (Version 4)
Quarter: 2016Q3

REPORT INFORMATION
  Report Type: Spontaneous
  Country: DE (occurrence: DE)
  Receive Date: 20160531
  Receipt Date: 20160708
  Transmission Date: 20161109
  Serious: Yes (Other)
  Sender: FDA-Public Use
  Company Number: DE-AUROBINDO-AUR-APL-2016-04123

PATIENT
  Age: 48 Year
  Sex: Male
  Weight: 85 kg

DRUGS (2)
  1. TERBINAFIN-ACTAVIS 250 MG TABLET [Suspect]
     Active Substance: TERBINAFINE
     Indication: TINEA PEDIS
  2. TERBINAFIN-ACTAVIS 250 MG TABLET [Suspect]
     Active Substance: TERBINAFINE
     Indication: ONYCHOMYCOSIS
     Dosage: 1ST WEEK 2 X 1/DAY,2ND WEEK 2XPER WEEK
     Route: 048
     Dates: start: 20160206, end: 20160311

REACTIONS (5)
  - Pruritus [Recovered/Resolved]
  - Restlessness [Recovered/Resolved]
  - Scratch [Recovered/Resolved]
  - Rash [Recovered/Resolved]
  - Sleep disorder [Recovered/Resolved]

NARRATIVE: CASE EVENT DATE: 20160307
